FAERS Safety Report 21044333 (Version 1)
Quarter: 2022Q3

REPORT INFORMATION
  Report Type: Spontaneous
  Country: US (occurrence: None)
  Receive Date: 20220704
  Receipt Date: 20220704
  Transmission Date: 20221027
  Serious: Yes (unspecified)
  Sender: FDA-Public Use
  Company Number: None

PATIENT
  Age: 48 Year
  Sex: Female
  Weight: 107.1 kg

DRUGS (6)
  1. ZYRTEC-D [Suspect]
     Active Substance: CETIRIZINE HYDROCHLORIDE\PSEUDOEPHEDRINE HYDROCHLORIDE
     Indication: Hypersensitivity
     Dosage: FREQUENCY : AS NEEDED;?
     Route: 048
     Dates: start: 20220704, end: 20220704
  2. ZYRTEC-D [Suspect]
     Active Substance: CETIRIZINE HYDROCHLORIDE\PSEUDOEPHEDRINE HYDROCHLORIDE
     Indication: Sinus disorder
  3. VITAMIN D3 [Concomitant]
     Active Substance: CHOLECALCIFEROL
  4. daily Vitamins ( Smarty Pants) [Concomitant]
  5. APPLE CIDER VINEGAR [Concomitant]
     Active Substance: APPLE CIDER VINEGAR
  6. Goli [Concomitant]

REACTIONS (5)
  - Burning sensation [None]
  - Rash erythematous [None]
  - Eye swelling [None]
  - Pharyngeal swelling [None]
  - Dyspnoea [None]

NARRATIVE: CASE EVENT DATE: 20220704
